FAERS Safety Report 8167252-6 (Version None)
Quarter: 2012Q1

REPORT INFORMATION
  Report Type: 
  Country: None (occurrence: None)
  Receive Date: 20120227
  Receipt Date: 20120222
  Transmission Date: 20120608
  Serious: No
  Sender: FDA-Public Use
  Company Number: US-PFIZER INC-2012047786

PATIENT
  Sex: Female
  Weight: 68.03 kg

DRUGS (2)
  1. VENLAFAXINE HCL [Suspect]
     Indication: DEPRESSION
     Dosage: 75 MG, 1X/DAY
     Route: 048
     Dates: start: 20080101
  2. VENLAFAXINE HCL [Suspect]
     Indication: PAIN
     Dosage: UNK

REACTIONS (5)
  - DRUG INEFFECTIVE [None]
  - PARAESTHESIA [None]
  - FATIGUE [None]
  - PAIN [None]
  - INFLUENZA LIKE ILLNESS [None]
